FAERS Safety Report 6659561-4 (Version None)
Quarter: 2010Q1

REPORT INFORMATION
  Report Type: 
  Country: None (occurrence: None)
  Receive Date: 20100330
  Receipt Date: 20100322
  Transmission Date: 20100710
  Serious: Yes (Death)
  Sender: FDA-Public Use
  Company Number: US-WATSON-2010-03585

PATIENT
  Age: 53 Year
  Sex: Female

DRUGS (8)
  1. OXYTROL [Suspect]
     Indication: DRUG USE FOR UNKNOWN INDICATION
     Route: 048
  2. ALBUTEROL (WATSON LABORATORIES) [Suspect]
     Indication: DRUG USE FOR UNKNOWN INDICATION
     Route: 048
  3. LITHIUM [Suspect]
     Indication: DRUG USE FOR UNKNOWN INDICATION
  4. ANGIOTENSIN II [Suspect]
     Indication: DRUG USE FOR UNKNOWN INDICATION
  5. CLEMASTINE FUMARATE [Suspect]
     Indication: DRUG USE FOR UNKNOWN INDICATION
  6. ACETAMINOPHEN [Suspect]
     Indication: DRUG USE FOR UNKNOWN INDICATION
  7. TOPICAL STEROIDS [Suspect]
     Indication: DRUG USE FOR UNKNOWN INDICATION
  8. VALPROIC ACID [Suspect]
     Indication: DRUG USE FOR UNKNOWN INDICATION

REACTIONS (1)
  - DEATH [None]
